FAERS Safety Report 10507829 (Version 3)
Quarter: 2015Q1

REPORT INFORMATION
  Report Type: Other
  Country: GB (occurrence: GB)
  Receive Date: 20141009
  Receipt Date: 20150218
  Transmission Date: 20150720
  Serious: Yes (Hospitalization)
  Sender: FDA-Public Use
  Company Number: GB-MYLANLABS-2014M1006047

PATIENT
  Age: 67 Year
  Sex: Female
  Weight: 95 kg

DRUGS (17)
  1. DIAZEPAM. [Concomitant]
     Active Substance: DIAZEPAM
     Dosage: 2MG AS NECESSARY (PRN) MAXIMAL TWICE DAILY. CEASED ON HOSPITAL ADMISSION
  2. FUROSEMIDE. [Concomitant]
     Active Substance: FUROSEMIDE
     Dosage: INCREASED BY CONSULTANT TO 80 MG BD FOR ONE MONTH THEN REDUCED BACK TO 120 MG DAILY AS BEFORE
  3. LANSOPRAZOLE. [Concomitant]
     Active Substance: LANSOPRAZOLE
     Dosage: 30 MG, QD
  4. DIGOXIN. [Suspect]
     Active Substance: DIGOXIN
     Indication: ATRIAL FIBRILLATION
     Dosage: 250 ?G, QD
     Route: 048
     Dates: start: 2004, end: 20140916
  5. AMLODIPINE [Concomitant]
     Active Substance: AMLODIPINE BESYLATE
     Dosage: 5 MG, QD CEASED ON HOSPITAL ADMISSION
  6. GLICLAZIDE [Concomitant]
     Active Substance: GLICLAZIDE
     Dosage: 80 MG, BID
  7. METFORMIN [Concomitant]
     Active Substance: METFORMIN HYDROCHLORIDE
     Indication: DIABETES MELLITUS
     Dosage: 2 G, QD CEASED ON HOSPITAL ADMISSION
  8. VENTOLIN [Concomitant]
     Active Substance: ALBUTEROL SULFATE
     Dosage: 2 DF, PRN
     Route: 055
  9. VICTOZA [Concomitant]
     Active Substance: LIRAGLUTIDE
     Dosage: CEASED ON HOSPITAL ADMISSION
     Route: 030
  10. SPIRONOLACTONE. [Concomitant]
     Active Substance: SPIRONOLACTONE
     Dosage: 25 MG, QD
  11. AZITHROMYCIN [Suspect]
     Active Substance: AZITHROMYCIN ANHYDROUS
     Indication: CHRONIC OBSTRUCTIVE PULMONARY DISEASE
     Dosage: 250 MG, QD CEASED ON HOSPITAL ADMISSION
     Route: 048
     Dates: start: 20140819, end: 20140904
  12. CARBOCISTEINE [Concomitant]
     Active Substance: CARBOCYSTEINE
     Dosage: 750 MG, TID
     Route: 048
  13. METOCLOPRAMIDE. [Concomitant]
     Active Substance: METOCLOPRAMIDE
     Dosage: 10 MG, TID
  14. SERETIDE [Concomitant]
     Active Substance: FLUTICASONE FUROATE\SALMETEROL XINAFOATE
     Dosage: 2 DF, BID
     Route: 055
  15. COCODAMOL [Concomitant]
     Active Substance: ACETAMINOPHEN\CODEINE PHOSPHATE
     Dosage: 30/500 MG ONE OR TWO FOUR TIMES DAILY
  16. TIOTROPIUM BROMIDE [Concomitant]
     Active Substance: TIOTROPIUM BROMIDE
     Dosage: 18 ?G, QD
  17. WARFARIN [Concomitant]
     Active Substance: WARFARIN
     Dosage: UNK

REACTIONS (10)
  - Toxicity to various agents [Unknown]
  - Renal injury [Unknown]
  - Vomiting [Unknown]
  - Dehydration [Unknown]
  - Abdominal pain [Unknown]
  - Bradycardia [Unknown]
  - International normalised ratio increased [Unknown]
  - Nausea [Unknown]
  - Hypotension [Unknown]
  - Lethargy [Unknown]

NARRATIVE: CASE EVENT DATE: 20140904
